FAERS Safety Report 15624472 (Version 2)
Quarter: 2018Q4

REPORT INFORMATION
  Report Type: Other
  Country: JP (occurrence: JP)
  Receive Date: 20181116
  Receipt Date: 20181128
  Transmission Date: 20190205
  Serious: Yes (Hospitalization)
  Sender: FDA-Public Use
  Company Number: JP-ASTELLAS-2018US048570

PATIENT
  Age: 35 Year
  Sex: Female

DRUGS (10)
  1. NELFINAVIR [Suspect]
     Active Substance: NELFINAVIR
     Indication: HIV INFECTION
     Route: 048
     Dates: start: 20000322, end: 20000426
  2. AMPHOTERICIN B, LIPOSOME [Suspect]
     Active Substance: AMPHOTERICIN B
     Indication: PRODUCT USED FOR UNKNOWN INDICATION
     Dosage: UNK UNK, UNKNOWN FREQ.
     Route: 065
     Dates: end: 20000331
  3. DIDANOSINE. [Suspect]
     Active Substance: DIDANOSINE
     Indication: ACQUIRED IMMUNODEFICIENCY SYNDROME
     Dosage: UNK UNK, UNKNOWN FREQ.
     Route: 065
  4. LAMIVUDINE. [Suspect]
     Active Substance: LAMIVUDINE
     Indication: ACQUIRED IMMUNODEFICIENCY SYNDROME
     Route: 048
     Dates: start: 20000322, end: 20000426
  5. GANCICLOVIR. [Suspect]
     Active Substance: GANCICLOVIR
     Indication: HERPES SIMPLEX
     Route: 042
     Dates: start: 20000322, end: 20000410
  6. STAVUDINE. [Suspect]
     Active Substance: STAVUDINE
     Indication: ACQUIRED IMMUNODEFICIENCY SYNDROME
     Route: 048
     Dates: start: 20000322, end: 20000426
  7. FLUCONAZOLE. [Suspect]
     Active Substance: FLUCONAZOLE
     Indication: PRODUCT USED FOR UNKNOWN INDICATION
     Route: 065
     Dates: start: 20000130, end: 20000721
  8. CEFTAZIDIME. [Suspect]
     Active Substance: CEFTAZIDIME
     Indication: OSTEOMYELITIS
     Route: 042
     Dates: start: 20000202, end: 20000225
  9. ZIDOVUDINE. [Suspect]
     Active Substance: ZIDOVUDINE
     Indication: ACQUIRED IMMUNODEFICIENCY SYNDROME
     Dosage: UNK UNK, UNKNOWN FREQ.
     Route: 048
  10. INDINAVIR [Suspect]
     Active Substance: INDINAVIR
     Indication: ACQUIRED IMMUNODEFICIENCY SYNDROME
     Dosage: UNK UNK, UNKNOWN FREQ.
     Route: 065

REACTIONS (14)
  - Pyrexia [Unknown]
  - Oral candidiasis [Unknown]
  - Diabetes mellitus [Unknown]
  - Hyperglycaemia [Unknown]
  - Thirst [Unknown]
  - Genital herpes [Unknown]
  - Disease progression [Unknown]
  - Ketonuria [Unknown]
  - Cytomegalovirus infection [Unknown]
  - Aspartate aminotransferase increased [Unknown]
  - Shock [Unknown]
  - Alanine aminotransferase increased [Unknown]
  - Weight decreased [Unknown]
  - Toxic skin eruption [Unknown]

NARRATIVE: CASE EVENT DATE: 20000223
